FAERS Safety Report 10434698 (Version 1)
Quarter: 2014Q2

REPORT INFORMATION
  Report Type: Spontaneous
  Country: US (occurrence: None)
  Receive Date: 20140530
  Receipt Date: 20140530
  Transmission Date: 20141212
  Serious: Yes (Other)
  Sender: FDA-Public Use
  Company Number: 2012032887

PATIENT
  Age: 53 Year
  Sex: Female
  Weight: 90.72 kg

DRUGS (8)
  1. HIZENTRA (IMMUNOGLOBULIN HUMAN NORMAL) [Suspect]
     Indication: IMMUNODEFICIENCY COMMON VARIABLE
     Dates: start: 20120714, end: 20120714
  2. EJUVIA (SYNTHETIC ESTROGENS, PLAIN) [Concomitant]
  3. FLEXERIL (CYCLBENZAPRINE HYDROCHLORIDE) [Concomitant]
  4. DIPHENHYDRAMINE (DIPHENHYDRAMINE) [Concomitant]
  5. EPINEPHRINE (EPINEPHRINE) [Concomitant]
  6. LIDOCAINE/PRILOCAINE (EMLA) [Concomitant]
  7. METHADONE (METHADONE) [Concomitant]
  8. SAVELLA (ALL OTHER NONT-THERAPEUTIC PRODUCTS) [Concomitant]

REACTIONS (4)
  - Muscle spasms [None]
  - Infusion site mass [None]
  - Infusion site pain [None]
  - Infusion site swelling [None]
